FAERS Safety Report 9710802 (Version 1)
Quarter: 2013Q4

REPORT INFORMATION
  Report Type: Spontaneous
  Country: US (occurrence: US)
  Receive Date: 20131126
  Receipt Date: 20131126
  Transmission Date: 20140711
  Serious: No
  Sender: FDA-Public Use
  Company Number: US-BRISTOL-MYERS SQUIBB COMPANY-19011238

PATIENT
  Age: 64 Year
  Sex: Male

DRUGS (4)
  1. BYDUREON [Suspect]
  2. BYETTA [Suspect]
     Dosage: 25MAY2013 TO 9JUN2013
     Dates: start: 20130525
  3. METFORMIN HCL [Suspect]
  4. GLIPIZIDE [Concomitant]
     Dosage: STOPPED:30MAY2012?RESTARTED: 09JUN2013
     Dates: start: 20130203

REACTIONS (1)
  - Blood glucose increased [Unknown]
